FAERS Safety Report 4343568-6 (Version None)
Quarter: 2004Q2

REPORT INFORMATION
  Report Type: 
  Country: None (occurrence: None)
  Receive Date: 20040419
  Receipt Date: 20040405
  Transmission Date: 20050107
  Serious: Yes (Death)
  Sender: FDA-Public Use
  Company Number: US-JNJFOC-20040204587

PATIENT
  Age: 26 Year
  Sex: Male
  Weight: 85.7298 kg

DRUGS (7)
  1. DURAGESIC [Suspect]
     Indication: PAIN
     Dosage: 150 UG/HR, 1 IN 72 HOUR, TRANSDERMAL
     Route: 062
     Dates: start: 20030508, end: 20040206
  2. DURAGESIC [Suspect]
     Indication: PAIN
     Dosage: 150 UG/HR, 1 IN 72 HOUR, TRANSDERMAL
     Route: 062
     Dates: start: 20030124
  3. DURAGESIC [Suspect]
  4. KLONOPIN [Concomitant]
  5. DILAUDID [Concomitant]
  6. FOLIC ACID [Concomitant]
  7. HYDROXYUREA [Concomitant]

REACTIONS (12)
  - ACCIDENT [None]
  - BLOOD PRESSURE INCREASED [None]
  - BRAIN OEDEMA [None]
  - DRUG TOXICITY [None]
  - HEPATIC CONGESTION [None]
  - HYDROCEPHALUS [None]
  - INJURY [None]
  - MEDICATION ERROR [None]
  - PAIN [None]
  - PULMONARY OEDEMA [None]
  - RENAL VESSEL DISORDER [None]
  - TREATMENT NONCOMPLIANCE [None]
